FAERS Safety Report 16741446 (Version 2)
Quarter: 2019Q4

REPORT INFORMATION
  Report Type: Spontaneous
  Country: US (occurrence: US)
  Receive Date: 20190826
  Receipt Date: 20191024
  Transmission Date: 20200122
  Serious: Yes (Death, Hospitalization, Other)
  Sender: FDA-Public Use
  Company Number: US-PFIZER INC-2019109681

PATIENT
  Age: 67 Year
  Sex: Male

DRUGS (3)
  1. SULINDAC. [Concomitant]
     Active Substance: SULINDAC
     Dosage: 150 MG, 2X/DAY
     Dates: start: 20190318, end: 20190511
  2. TRAMETINIB [Concomitant]
     Active Substance: TRAMETINIB
     Dosage: 0.5 MG, DAILY
     Dates: start: 20190225, end: 20190511
  3. IBRANCE [Suspect]
     Active Substance: PALBOCICLIB
     Indication: COLON CANCER
     Dosage: 75 MG, UNK

REACTIONS (8)
  - Renal impairment [Unknown]
  - Blood glucose increased [Unknown]
  - Confusional state [Unknown]
  - Off label use [Unknown]
  - Product use in unapproved indication [Unknown]
  - Neoplasm progression [Fatal]
  - Dehydration [Unknown]
  - Asthenia [Unknown]

NARRATIVE: CASE EVENT DATE: 20190511
